FAERS Safety Report 8989015 (Version 1)
Quarter: 2012Q4

REPORT INFORMATION
  Report Type: 
  Country: SE (occurrence: SE)
  Receive Date: 20121228
  Receipt Date: 20121228
  Transmission Date: 20130627
  Serious: Yes (Hospitalization)
  Sender: FDA-Public Use
  Company Number: SE-SANOFI-AVENTIS-2012SA092400

PATIENT
  Age: 90 Year
  Sex: Male

DRUGS (8)
  1. STILNOCT [Suspect]
     Indication: DRUG USE FOR UNKNOWN INDICATION
     Route: 065
     Dates: end: 20120806
  2. TRADOLAN [Suspect]
     Indication: DRUG USE FOR UNKNOWN INDICATION
     Route: 065
     Dates: end: 20120806
  3. SPARKAL [Suspect]
     Indication: DRUG USE FOR UNKNOWN INDICATION
     Route: 065
     Dates: end: 20120806
  4. PANODIL [Concomitant]
  5. MADOPARK [Concomitant]
  6. TROMBYL [Concomitant]
  7. CYANOCOBALAMIN [Concomitant]
  8. XATRAL OD [Concomitant]

REACTIONS (4)
  - Hyponatraemia [Unknown]
  - Thoracic vertebral fracture [Unknown]
  - Fall [Unknown]
  - Confusional state [Unknown]
